FAERS Safety Report 12883774 (Version 1)
Quarter: 2016Q4

REPORT INFORMATION
  Report Type: Spontaneous
  Country: US (occurrence: US)
  Receive Date: 20161024
  Receipt Date: 20161024
  Transmission Date: 20170207
  Serious: No
  Sender: FDA-Public Use
  Company Number: None

PATIENT
  Age: 64 Year
  Sex: Male
  Weight: 114.2 kg

DRUGS (1)
  1. APIXABAN [Suspect]
     Active Substance: APIXABAN
     Indication: VENOUS THROMBOSIS
     Route: 048
     Dates: start: 20160914, end: 20161008

REACTIONS (3)
  - Urticaria [None]
  - Cardiac disorder [None]
  - Pruritus [None]

NARRATIVE: CASE EVENT DATE: 20161012
